FAERS Safety Report 13289322 (Version 6)
Quarter: 2018Q3

REPORT INFORMATION
  Report Type: Spontaneous
  Country: JP (occurrence: JP)
  Receive Date: 20170302
  Receipt Date: 20180929
  Transmission Date: 20181010
  Serious: Yes (Death, Hospitalization, Other)
  Sender: FDA-Public Use
  Company Number: JP-BRISTOL-MYERS SQUIBB COMPANY-BMS-2017-010764

PATIENT
  Age: 59 Year
  Sex: Male

DRUGS (1)
  1. OPDIVO [Suspect]
     Active Substance: NIVOLUMAB
     Indication: NON-SMALL CELL LUNG CANCER RECURRENT
     Dosage: 3 MG/KG, Q2WK
     Route: 041
     Dates: start: 20170116, end: 20170130

REACTIONS (4)
  - Liver disorder [Not Recovered/Not Resolved]
  - Metastases to adrenals [Unknown]
  - Malignant neoplasm progression [Fatal]
  - Haemangioma of liver [Unknown]

NARRATIVE: CASE EVENT DATE: 20170130
